FAERS Safety Report 9512993 (Version 1)
Quarter: 2013Q3

REPORT INFORMATION
  Report Type: Spontaneous
  Country: US (occurrence: US)
  Receive Date: 20130910
  Receipt Date: 20130910
  Transmission Date: 20140515
  Serious: No
  Sender: FDA-Public Use
  Company Number: US-PFIZER INC-2013256087

PATIENT
  Sex: Male

DRUGS (2)
  1. SUTENT [Suspect]
     Dosage: UNK
  2. SEROQUEL [Suspect]
     Dosage: UNK

REACTIONS (4)
  - Diarrhoea [Unknown]
  - Skin lesion [Unknown]
  - Rash [Unknown]
  - Stomatitis [Unknown]
